FAERS Safety Report 24091085 (Version 1)
Quarter: 2024Q3

REPORT INFORMATION
  Report Type: Spontaneous
  Country: US (occurrence: None)
  Receive Date: 20240712
  Receipt Date: 20240712
  Transmission Date: 20241016
  Serious: Yes (Hospitalization)
  Sender: Public
  Company Number: None

PATIENT
  Age: 86 Year
  Sex: Female

DRUGS (1)
  1. SKYRIZI [Suspect]
     Active Substance: RISANKIZUMAB-RZAA
     Indication: Psoriasis
     Dosage: 150MG EVERY 12 WEEKS SQ?
     Route: 058
     Dates: start: 202401

REACTIONS (4)
  - Dizziness [None]
  - Dizziness [None]
  - Drug hypersensitivity [None]
  - Contrast media reaction [None]

NARRATIVE: CASE EVENT DATE: 20240707
